FAERS Safety Report 4367380-7 (Version None)
Quarter: 2004Q2

REPORT INFORMATION
  Report Type: 
  Country: None (occurrence: None)
  Receive Date: 20040601
  Receipt Date: 20040512
  Transmission Date: 20050107
  Serious: Yes (Death)
  Sender: FDA-Public Use
  Company Number: PHBS2004JP06398

PATIENT
  Age: 27 Year
  Sex: Male

DRUGS (4)
  1. SIMULECT [Suspect]
     Indication: RENAL TRANSPLANT
     Route: 042
  2. TACROLIMUS [Suspect]
     Route: 065
  3. PREDNISOLONE [Suspect]
     Route: 065
  4. CELLCEPT [Suspect]
     Route: 065

REACTIONS (7)
  - ANOREXIA [None]
  - DIARRHOEA [None]
  - EPSTEIN-BARR VIRUS INFECTION [None]
  - LYMPHOMA [None]
  - LYMPHOPROLIFERATIVE DISORDER [None]
  - PAIN [None]
  - PYREXIA [None]
